FAERS Safety Report 22080359 (Version 1)
Quarter: 2023Q1

REPORT INFORMATION
  Report Type: Spontaneous
  Country: CN (occurrence: CN)
  Receive Date: 20230309
  Receipt Date: 20230309
  Transmission Date: 20230417
  Serious: Yes (Hospitalization)
  Sender: FDA-Public Use
  Company Number: CN-FERRINGPH-2023FE01027

PATIENT

DRUGS (7)
  1. MENOTROPINS [Suspect]
     Active Substance: MENOTROPINS
     Indication: Ovulation induction
     Dosage: 75 INTERNATIONAL UNIT, DAILY
     Route: 065
  2. CLOMIPHENE CITRATE [Suspect]
     Active Substance: CLOMIPHENE CITRATE
     Indication: Assisted reproductive technology
     Dosage: 100 MG, DAILY
     Route: 048
  3. UROFOLLITROPIN [Suspect]
     Active Substance: UROFOLLITROPIN
     Indication: Assisted reproductive technology
     Dosage: 75 INTERNATIONAL UNIT, DAILY
     Route: 065
  4. CHORIOGONADOTROPIN ALFA [Suspect]
     Active Substance: CHORIOGONADOTROPIN ALFA
     Indication: Assisted reproductive technology
     Dosage: 10000 INTERNATIONAL UNIT, ONCE/SINGLE
     Route: 065
  5. MEDROXYPROGESTERONE [Concomitant]
     Active Substance: MEDROXYPROGESTERONE
     Indication: Assisted reproductive technology
     Dosage: 20 MG, DAILY
     Route: 048
  6. DYDROGESTERONE [Concomitant]
     Active Substance: DYDROGESTERONE
  7. VITAMIN COMPLEX [Concomitant]

REACTIONS (1)
  - Heterotopic pregnancy [Recovered/Resolved]
